FAERS Safety Report 7574848-9 (Version None)
Quarter: 2011Q2

REPORT INFORMATION
  Report Type: 
  Country: None (occurrence: None)
  Receive Date: 20110627
  Receipt Date: 20110117
  Transmission Date: 20111010
  Serious: Yes (Other)
  Sender: FDA-Public Use
  Company Number: US-BAYER-201030549NA

PATIENT
  Age: 25 Year
  Sex: Female
  Weight: 90.703 kg

DRUGS (4)
  1. YASMIN [Suspect]
     Dosage: UNK, QD
     Dates: start: 20080201, end: 20080701
  2. ALBUTEROL SULFATE AUTOHALER [Concomitant]
     Indication: ASTHMA
     Dosage: 1 DF, PRN
  3. YASMIN [Suspect]
     Indication: PRODUCT USED FOR UNKNOWN INDICATION
     Dosage: UNK UNK, QD
     Route: 048
     Dates: start: 20060523, end: 20070301
  4. ADVAIR DISKUS 100/50 [Concomitant]
     Indication: ASTHMA
     Dosage: 1 DF, QD

REACTIONS (4)
  - CHOLECYSTECTOMY [None]
  - CHOLECYSTITIS CHRONIC [None]
  - PAIN [None]
  - BILIARY DYSKINESIA [None]
